FAERS Safety Report 18968184 (Version 2)
Quarter: 2021Q2

REPORT INFORMATION
  Report Type: Spontaneous
  Country: GB (occurrence: GB)
  Receive Date: 20210304
  Receipt Date: 20210524
  Transmission Date: 20210717
  Serious: Yes (Hospitalization, Other)
  Sender: FDA-Public Use
  Company Number: GB-NOVOPROD-790918

PATIENT
  Age: 75 Year
  Sex: Male
  Weight: 122.6 kg

DRUGS (24)
  1. FOSTAIR [Concomitant]
     Active Substance: BECLOMETHASONE\FORMOTEROL
     Dosage: 2 PUFFS TWICE DAILY
     Route: 065
  2. QUININE SULFATE. [Concomitant]
     Active Substance: QUININE SULFATE
     Indication: PROPHYLAXIS
     Dosage: 300 MG, QD
     Route: 048
  3. FYBOGEL [Concomitant]
     Active Substance: PLANTAGO OVATA SEED
     Dosage: UNK
     Route: 065
  4. SALBUTAMOL [Concomitant]
     Active Substance: ALBUTEROL
     Dosage: UNK
     Route: 065
  5. FUROSEMIDE. [Concomitant]
     Active Substance: FUROSEMIDE
     Dosage: 20 MG, QD
     Route: 065
  6. PENICILLIN [BENZYLPENICILLIN] [Concomitant]
     Active Substance: PENICILLIN G
     Dosage: UNK
     Route: 065
  7. TRAMADOL. [Concomitant]
     Active Substance: TRAMADOL
     Dosage: UNK
     Route: 065
  8. BUSCOPAN [Concomitant]
     Active Substance: BUTYLSCOPOLAMINE BROMIDE
     Indication: PRODUCT USED FOR UNKNOWN INDICATION
     Dosage: UNK
     Route: 065
  9. CIPRO [Concomitant]
     Active Substance: CIPROFLOXACIN HYDROCHLORIDE
     Dosage: UNK
     Route: 065
  10. TETANUS VACCINE [TETANUS VACCINE TOXOID] [Concomitant]
     Dosage: UNK
     Route: 065
  11. ENTRESTO [Concomitant]
     Active Substance: SACUBITRIL\VALSARTAN
     Dosage: UNK
     Route: 065
  12. OMEPRAZOLE AMEL [OMEPRAZOLE SODIUM] [Concomitant]
     Indication: PROPHYLAXIS
     Dosage: 20 MG, QD
     Route: 065
  13. TRESIBA [Suspect]
     Active Substance: INSULIN DEGLUDEC
     Dosage: 120U DAILY EVERY MORNING
     Route: 058
  14. PARACETAMOL [Concomitant]
     Active Substance: ACETAMINOPHEN
     Dosage: UNK
     Route: 065
  15. GLICLAZIDE [Concomitant]
     Active Substance: GLICLAZIDE
     Dosage: 40 MG, BID
     Route: 065
  16. NEBIVOLOL. [Concomitant]
     Active Substance: NEBIVOLOL
     Dosage: UNK
     Route: 065
  17. NEBIVOLOL. [Concomitant]
     Active Substance: NEBIVOLOL
     Dosage: 1 DAILY FOR TOTAL OF 7.5MG
     Route: 048
  18. EPLERENONE. [Concomitant]
     Active Substance: EPLERENONE
     Indication: CARDIAC DISORDER
     Dosage: 25 MG, QD
     Route: 048
  19. ZAPAIN [Concomitant]
     Active Substance: ACETAMINOPHEN\CODEINE PHOSPHATE
     Indication: PAIN
     Dosage: UNK
     Route: 065
  20. TRESIBA [Suspect]
     Active Substance: INSULIN DEGLUDEC
     Indication: TYPE 2 DIABETES MELLITUS
     Dosage: UNK
     Route: 058
     Dates: start: 20201130
  21. VENTOLIN [Concomitant]
     Active Substance: ALBUTEROL SULFATE
     Dosage: UNK
     Route: 065
  22. ASPIRIN [ACETYLSALICYLIC ACID;ASCORBIC ACID] [Concomitant]
     Active Substance: ACETAMINOPHEN\ASCORBIC ACID
     Indication: CARDIAC DISORDER
     Dosage: 75 MG, QD
     Route: 048
  23. ROSUVASTATIN. [Concomitant]
     Active Substance: ROSUVASTATIN
     Indication: BLOOD CHOLESTEROL
     Dosage: 5 MG, BID
     Route: 048
  24. LEVITRA [Concomitant]
     Active Substance: VARDENAFIL HYDROCHLORIDE
     Dosage: UNK
     Route: 065

REACTIONS (5)
  - Hydroureter [Unknown]
  - Acute kidney injury [Unknown]
  - Bladder obstruction [Recovered/Resolved]
  - Nephrolithiasis [Unknown]
  - Hydronephrosis [Unknown]

NARRATIVE: CASE EVENT DATE: 20210127
